FAERS Safety Report 4610442-7 (Version None)
Quarter: 2005Q2

REPORT INFORMATION
  Report Type: 
  Country: None (occurrence: None)
  Receive Date: 20050301
  Receipt Date: 20041208
  Transmission Date: 20051028
  Serious: No
  Sender: FDA-Public Use
  Company Number: WAES 0412USA01073

PATIENT
  Age: 67 Year
  Sex: Female

DRUGS (3)
  1. ZETIA [Suspect]
     Indication: BLOOD CHOLESTEROL INCREASED
     Dosage: 10 MG/ DAILY/ PO
     Route: 048
     Dates: start: 20040901, end: 20041206
  2. PRAVACHOL [Concomitant]
  3. ATENOLOL [Concomitant]

REACTIONS (1)
  - ALOPECIA [None]
